FAERS Safety Report 10565763 (Version 2)
Quarter: 2015Q4

REPORT INFORMATION
  Report Type: Report from Study
  Country: BR (occurrence: BR)
  Receive Date: 20141105
  Receipt Date: 20151023
  Transmission Date: 20160304
  Serious: Yes (Other)
  Sender: FDA-Public Use
  Company Number: PHHY2014BR143741

PATIENT
  Sex: Male
  Weight: 16 kg

DRUGS (2)
  1. EXJADE [Suspect]
     Active Substance: DEFERASIROX
     Dosage: 500 MG, QD
     Route: 065
     Dates: end: 201409
  2. EXJADE [Suspect]
     Active Substance: DEFERASIROX
     Indication: SICKLE CELL ANAEMIA
     Dosage: 250 MG, UNK
     Route: 065

REACTIONS (12)
  - Syncope [Unknown]
  - Back pain [Unknown]
  - Blood disorder [Unknown]
  - Full blood count decreased [Unknown]
  - Pyrexia [Unknown]
  - Swelling [Unknown]
  - Serum ferritin increased [Recovering/Resolving]
  - Joint swelling [Unknown]
  - Splenomegaly [Unknown]
  - Infection [Unknown]
  - Sickle cell anaemia with crisis [Unknown]
  - Arthralgia [Unknown]
